FAERS Safety Report 23225725 (Version 1)
Quarter: 2023Q4

REPORT INFORMATION
  Report Type: Spontaneous
  Country: US (occurrence: US)
  Receive Date: 20231124
  Receipt Date: 20231124
  Transmission Date: 20240110
  Serious: No
  Sender: FDA-Public Use
  Company Number: US-SA-SAC20231117001599

PATIENT
  Age: 60 Year
  Sex: Male
  Weight: 104.32 kg

DRUGS (9)
  1. DUPIXENT [Suspect]
     Active Substance: DUPILUMAB
     Indication: Asthma
     Dosage: 600 MG, 1X
     Route: 058
     Dates: start: 20231108, end: 20231108
  2. TRELEGY ELLIPTA [Concomitant]
     Active Substance: FLUTICASONE FUROATE\UMECLIDINIUM BROMIDE\VILANTEROL TRIFENATATE
  3. QVAR REDIHALER [Concomitant]
     Active Substance: BECLOMETHASONE DIPROPIONATE
  4. ALBUTEROL SULFATE [Concomitant]
     Active Substance: ALBUTEROL SULFATE
  5. SINGULAIR [Concomitant]
     Active Substance: MONTELUKAST SODIUM
  6. WELLBUTRIN SR [Concomitant]
     Active Substance: BUPROPION HYDROCHLORIDE
  7. ZYRTEC [Concomitant]
     Active Substance: CETIRIZINE HYDROCHLORIDE
  8. XYZAL [Concomitant]
     Active Substance: LEVOCETIRIZINE DIHYDROCHLORIDE
  9. TESTOSTERONE CYPIONATE [Concomitant]
     Active Substance: TESTOSTERONE CYPIONATE

REACTIONS (5)
  - Blister [Not Recovered/Not Resolved]
  - Oral mucosal blistering [Not Recovered/Not Resolved]
  - Condition aggravated [Not Recovered/Not Resolved]
  - Oral discomfort [Unknown]
  - Tongue discomfort [Unknown]

NARRATIVE: CASE EVENT DATE: 20231101
